FAERS Safety Report 4930918-2 (Version None)
Quarter: 2006Q1

REPORT INFORMATION
  Report Type: 
  Country: None (occurrence: None)
  Receive Date: 20060227
  Receipt Date: 20060223
  Transmission Date: 20060701
  Serious: Yes (Other)
  Sender: FDA-Public Use
  Company Number: B0410500A

PATIENT
  Age: 43 Year
  Sex: Male
  Weight: 80.831 kg

DRUGS (3)
  1. COMBIVIR [Suspect]
     Indication: HIV INFECTION
     Dosage: 450 MG/ TWICE PER DAY
     Dates: start: 20000301
  2. KALETRA [Suspect]
     Indication: HIV INFECTION
     Dates: start: 20000301, end: 20030701
  3. BEZAFIBRATE [Concomitant]

REACTIONS (8)
  - BLOOD TRIGLYCERIDES INCREASED [None]
  - LIPODYSTROPHY ACQUIRED [None]
  - LIPOMATOSIS [None]
  - MENINGEAL NEOPLASM [None]
  - MYELOPATHY [None]
  - PARAPARESIS [None]
  - SPINAL CORD COMPRESSION [None]
  - URINARY RETENTION [None]
